FAERS Safety Report 6467563-6 (Version None)
Quarter: 2009Q4

REPORT INFORMATION
  Report Type: 
  Country: None (occurrence: None)
  Receive Date: 20091202
  Receipt Date: 20091124
  Transmission Date: 20100525
  Serious: Yes (Hospitalization, Other)
  Sender: FDA-Public Use
  Company Number: BR-ABBOTT-09P-020-0610607-00

PATIENT
  Sex: Female

DRUGS (4)
  1. HUMIRA [Suspect]
     Indication: RHEUMATOID ARTHRITIS
     Route: 058
     Dates: start: 20090101
  2. HUMIRA [Suspect]
  3. METHOTREXATE [Concomitant]
     Indication: ARTHRITIS
     Dosage: 1 CAPSULE/TABLET
     Route: 048
  4. METICORTEN [Concomitant]
     Indication: ARTHRALGIA
     Route: 048
     Dates: start: 19890101

REACTIONS (1)
  - BREAST CALCIFICATIONS [None]
